FAERS Safety Report 9049908 (Version 3)
Quarter: 2013Q3

REPORT INFORMATION
  Report Type: Report from Study
  Country: DE (occurrence: DE)
  Receive Date: 20130205
  Receipt Date: 20130824
  Transmission Date: 20140515
  Serious: Yes (Hospitalization, Other)
  Sender: FDA-Public Use
  Company Number: DE-ROCHE-1187803

PATIENT
  Sex: Male
  Weight: 103 kg

DRUGS (10)
  1. TOCILIZUMAB [Suspect]
     Indication: RHEUMATOID ARTHRITIS
     Route: 042
     Dates: start: 20110316, end: 20130820
  2. PREDNISOLON [Suspect]
     Indication: RHEUMATOID ARTHRITIS
     Route: 065
     Dates: start: 20040929
  3. CELEBREX [Suspect]
     Indication: RHEUMATOID ARTHRITIS
     Route: 065
     Dates: start: 20041215
  4. TRAMAL [Suspect]
     Indication: RHEUMATOID ARTHRITIS
     Route: 065
     Dates: start: 20040929
  5. DEKRISTOL [Suspect]
     Indication: RHEUMATOID ARTHRITIS
     Route: 065
     Dates: start: 20110809
  6. CALCILAC [Suspect]
     Indication: RHEUMATOID ARTHRITIS
     Route: 065
     Dates: start: 20040929
  7. RAMIPRIL [Suspect]
     Indication: HYPERTENSION
     Route: 065
     Dates: start: 2004
  8. FOSAMAX [Suspect]
     Indication: RHEUMATOID ARTHRITIS
     Route: 065
  9. METHOTREXATE [Concomitant]
     Indication: RHEUMATOID ARTHRITIS
     Route: 048
     Dates: end: 20120621
  10. PANTOPRAZOLE [Concomitant]
     Route: 065

REACTIONS (3)
  - Cerebrovascular accident [Recovering/Resolving]
  - Hemiparesis [Not Recovered/Not Resolved]
  - Dysphagia [Not Recovered/Not Resolved]
